FAERS Safety Report 17144869 (Version 1)
Quarter: 2019Q4

REPORT INFORMATION
  Report Type: Spontaneous
  Country: BR (occurrence: BR)
  Receive Date: 20191212
  Receipt Date: 20191212
  Transmission Date: 20200122
  Serious: Yes (Other)
  Sender: FDA-Public Use
  Company Number: BR-TEVA-2019-BR-1150671

PATIENT
  Age: 13 Year
  Sex: Female
  Weight: 45 kg

DRUGS (1)
  1. NEOTIGASON [Suspect]
     Active Substance: ACITRETIN
     Indication: PUSTULAR PSORIASIS
     Dosage: 2 TABLETS OF 10 MG PER DAY
     Route: 065
     Dates: start: 2009

REACTIONS (4)
  - Therapy cessation [Unknown]
  - Skin reaction [Unknown]
  - Psoriasis [Unknown]
  - Psoriasis [Not Recovered/Not Resolved]
